FAERS Safety Report 6793999-X (Version None)
Quarter: 2010Q2

REPORT INFORMATION
  Report Type: 
  Country: None (occurrence: None)
  Receive Date: 20100624
  Receipt Date: 20070713
  Transmission Date: 20101027
  Serious: No
  Sender: FDA-Public Use
  Company Number: US-PFIZER INC-ENC200700107

PATIENT
  Sex: Female

DRUGS (1)
  1. ARGATROBAN [Suspect]
     Indication: HEPARIN-INDUCED THROMBOCYTOPENIA
     Dosage: FREQUENCY:  UNK

REACTIONS (1)
  - ACTIVATED PARTIAL THROMBOPLASTIN TIME SHORTENED [None]
